FAERS Safety Report 13599363 (Version 1)
Quarter: 2017Q2

REPORT INFORMATION
  Report Type: Spontaneous
  Country: US (occurrence: US)
  Receive Date: 20170531
  Receipt Date: 20170531
  Transmission Date: 20170830
  Serious: Yes (Other)
  Sender: FDA-Public Use
  Company Number: US-BAYER-2017-099140

PATIENT
  Age: 69 Year
  Sex: Female

DRUGS (2)
  1. ACETYLSALICYLIC ACID (} 100 MG) [Suspect]
     Active Substance: ASPIRIN
  2. PAZOPANIB [Suspect]
     Active Substance: PAZOPANIB
     Indication: METASTATIC RENAL CELL CARCINOMA
     Dosage: UNK
     Dates: start: 2016

REACTIONS (7)
  - Headache [None]
  - Platelet dysfunction [None]
  - Subdural haematoma [None]
  - Hemiparesis [None]
  - Cerebral haemorrhage [None]
  - Posterior reversible encephalopathy syndrome [None]
  - Fall [None]
